FAERS Safety Report 20326940 (Version 1)
Quarter: 2022Q1

REPORT INFORMATION
  Report Type: Report from Study
  Country: JP (occurrence: JP)
  Receive Date: 20220112
  Receipt Date: 20220112
  Transmission Date: 20220424
  Serious: Yes (Other)
  Sender: FDA-Public Use
  Company Number: JP-JNJFOC-20220117747

PATIENT
  Age: 79 Year
  Sex: Male

DRUGS (7)
  1. ERLEADA [Suspect]
     Active Substance: APALUTAMIDE
     Indication: Prostate cancer
     Dosage: DOSE UNKNOWN
     Route: 048
     Dates: start: 20200701
  2. OLOPATADINE HYDROCHLORIDE [Suspect]
     Active Substance: OLOPATADINE HYDROCHLORIDE
     Dosage: DOSE UNKNOWN
     Route: 065
  3. CALCIUM CARBONATE\CHOLECALCIFEROL\MAGNESIUM CARBONATE [Suspect]
     Active Substance: CALCIUM CARBONATE\CHOLECALCIFEROL\MAGNESIUM CARBONATE
     Dosage: DOSE UNKNOWN
     Route: 048
  4. HERBALS [Suspect]
     Active Substance: HERBALS
     Dosage: DOSE UNKNOWN
     Route: 048
  5. LEVOTHYROXINE [Suspect]
     Active Substance: LEVOTHYROXINE
     Dosage: DOSE UNKNOWN
     Route: 065
  6. DENOSUMAB [Suspect]
     Active Substance: DENOSUMAB
     Dosage: DOSE UNKNOWN
     Route: 058
  7. DEGARELIX [Suspect]
     Active Substance: DEGARELIX
     Dosage: DOSE UNKNOWN
     Route: 058

REACTIONS (1)
  - Polymyalgia rheumatica [Recovered/Resolved]

NARRATIVE: CASE EVENT DATE: 20201223
